FAERS Safety Report 20643575 (Version 6)
Quarter: 2023Q2

REPORT INFORMATION
  Report Type: Report from Study
  Country: US (occurrence: US)
  Receive Date: 20220328
  Receipt Date: 20230608
  Transmission Date: 20230721
  Serious: No
  Sender: FDA-Public Use
  Company Number: US-NOVARTISTESTPH-NVSC2022US068560

PATIENT
  Age: 57 Year
  Sex: Female

DRUGS (2)
  1. GLATOPA [Suspect]
     Active Substance: GLATIRAMER ACETATE
     Indication: Multiple sclerosis
     Dosage: 20 MG, QD
     Route: 058
     Dates: start: 20151110
  2. GLATOPA [Suspect]
     Active Substance: GLATIRAMER ACETATE
     Dosage: 20 MG, QD
     Route: 058
     Dates: start: 20190519

REACTIONS (6)
  - Skin discolouration [Unknown]
  - Contusion [Unknown]
  - Scab [Unknown]
  - Wound [Unknown]
  - Injection site reaction [Unknown]
  - Product leakage [Unknown]

NARRATIVE: CASE EVENT DATE: 20220323
